FAERS Safety Report 10184335 (Version 1)
Quarter: 2014Q2

REPORT INFORMATION
  Report Type: Spontaneous
  Country: US (occurrence: US)
  Receive Date: 20140520
  Receipt Date: 20140520
  Transmission Date: 20141212
  Serious: No
  Sender: FDA-Public Use
  Company Number: US-TEVA-482812USA

PATIENT
  Age: 56 Year
  Sex: Male
  Weight: 90.8 kg

DRUGS (3)
  1. FENTORA [Suspect]
     Indication: DEAFNESS NEUROSENSORY
     Dosage: IS TAKING 800 MCG (4-5 LOZENGES) DAILY
     Route: 002
     Dates: start: 2010
  2. OXYCONTIN [Concomitant]
     Indication: NERVE INJURY
     Dosage: 120 MILLIGRAM DAILY;
  3. CYMBALTA [Concomitant]
     Indication: NERVE INJURY
     Dosage: 60 MILLIGRAM DAILY;

REACTIONS (2)
  - Dental prosthesis user [Recovered/Resolved]
  - Off label use [Unknown]
